FAERS Safety Report 6304354-0 (Version None)
Quarter: 2009Q3

REPORT INFORMATION
  Report Type: 
  Country: None (occurrence: None)
  Receive Date: 20090811
  Receipt Date: 20090803
  Transmission Date: 20100115
  Serious: Yes (Hospitalization, Other)
  Sender: FDA-Public Use
  Company Number: GB-B.I. PHARMACEUTICALS,INC./RIDGEFIELD-2008-UK-01507UK

PATIENT
  Sex: Male
  Weight: 3.5 kg

DRUGS (7)
  1. ATROVENT [Suspect]
     Indication: ASTHMA
     Route: 064
  2. AMINOPHYLLINE [Suspect]
     Indication: ASTHMA
     Route: 064
  3. AMOXICILLIN [Suspect]
     Indication: ASTHMA
     Route: 064
  4. CLARITHROMYCIN [Suspect]
     Indication: ASTHMA
     Route: 064
  5. HYDROCORTISONE [Suspect]
     Indication: ASTHMA
     Route: 064
  6. MAGNESIUM SULFATE [Suspect]
     Indication: ASTHMA
     Route: 064
  7. SALBUTAMOL SULPHATE [Suspect]
     Indication: ASTHMA
     Dosage: 30 MG
     Route: 064

REACTIONS (2)
  - FOETAL DISTRESS SYNDROME [None]
  - TACHYCARDIA FOETAL [None]
